FAERS Safety Report 14184575 (Version 2)
Quarter: 2017Q4

REPORT INFORMATION
  Report Type: Report from Study
  Country: US (occurrence: US)
  Receive Date: 20171113
  Receipt Date: 20171117
  Transmission Date: 20180321
  Serious: Yes (Hospitalization)
  Sender: FDA-Public Use
  Company Number: US-ALKERMES INC.-ALK-2017-004808

PATIENT
  Sex: Male

DRUGS (1)
  1. VIVITROL [Suspect]
     Active Substance: NALTREXONE
     Indication: ALCOHOLISM
     Dosage: 380 MG, QMO
     Route: 030
     Dates: start: 20170830, end: 20170830

REACTIONS (5)
  - Drug dose omission [Unknown]
  - Decubitus ulcer [Recovered/Resolved]
  - Rash [Unknown]
  - Alcohol withdrawal syndrome [Recovered/Resolved]
  - Alcoholism [Unknown]

NARRATIVE: CASE EVENT DATE: 2017
